FAERS Safety Report 7199872-X (Version None)
Quarter: 2010Q4

REPORT INFORMATION
  Report Type: 
  Country: None (occurrence: None)
  Receive Date: 20101214
  Receipt Date: 20101130
  Transmission Date: 20110411
  Serious: Yes (Death, Other)
  Sender: FDA-Public Use
  Company Number: 012119

PATIENT
  Age: 43 Year
  Sex: Male

DRUGS (2)
  1. BUSULFAN [Suspect]
     Indication: BONE MARROW TRANSPLANT
  2. ETOPOSIDE [Concomitant]

REACTIONS (3)
  - ANAEMIA [None]
  - FATIGUE [None]
  - THROMBOCYTOPENIA [None]
